FAERS Safety Report 19796122 (Version 1)
Quarter: 2021Q3

REPORT INFORMATION
  Report Type: Report from Study
  Country: GB (occurrence: GB)
  Receive Date: 20210907
  Receipt Date: 20210907
  Transmission Date: 20211014
  Serious: Yes (Other)
  Sender: FDA-Public Use
  Company Number: NVSC2021GB033577

PATIENT
  Sex: Male

DRUGS (1)
  1. OMNITROPE [Suspect]
     Active Substance: SOMATROPIN
     Indication: GROWTH HORMONE DEFICIENCY
     Dosage: 0.2 MG, QD (SUREPAL)
     Route: 058
     Dates: start: 20150630

REACTIONS (3)
  - Brain neoplasm [Unknown]
  - Product dose omission issue [Unknown]
  - Device difficult to use [Unknown]
